FAERS Safety Report 6191105-6 (Version None)
Quarter: 2009Q2

REPORT INFORMATION
  Report Type: 
  Country: None (occurrence: None)
  Receive Date: 20090513
  Receipt Date: 20090513
  Transmission Date: 20091009
  Serious: Yes (Hospitalization)
  Sender: FDA-Public Use
  Company Number: None

PATIENT
  Age: 62 Year
  Sex: Male

DRUGS (2)
  1. METHADONE [Suspect]
     Indication: BACK PAIN
     Dosage: 30 MG TID PO
     Route: 048
     Dates: start: 20090504
  2. ACETAMINOPHEN AND HYDROCODONE BITARTRATE [Suspect]
     Indication: BACK PAIN
     Dosage: 1 TAB MG OTHER PO
     Route: 048
     Dates: start: 20090504, end: 20090509

REACTIONS (10)
  - CONFUSIONAL STATE [None]
  - DYSARTHRIA [None]
  - DYSURIA [None]
  - HYPERHIDROSIS [None]
  - NAUSEA [None]
  - OVERDOSE [None]
  - SEDATION [None]
  - SOMNOLENCE [None]
  - SPEECH DISORDER [None]
  - VOMITING [None]
